FAERS Safety Report 5716000-5 (Version None)
Quarter: 2008Q2

REPORT INFORMATION
  Report Type: 
  Country: None (occurrence: None)
  Receive Date: 20080424
  Receipt Date: 20080409
  Transmission Date: 20081010
  Serious: Yes (Hospitalization)
  Sender: FDA-Public Use
  Company Number: JP-GENENTECH-258846

PATIENT
  Sex: Male
  Weight: 60 kg

DRUGS (4)
  1. AVASTIN [Suspect]
     Indication: COLON CANCER METASTATIC
     Dosage: 300 MG, Q2W
     Route: 041
     Dates: start: 20080117, end: 20080313
  2. OXALIPLATIN [Suspect]
     Indication: COLON CANCER METASTATIC
     Route: 041
     Dates: start: 20070420, end: 20080313
  3. FLUOROURACIL [Suspect]
     Indication: COLON CANCER METASTATIC
     Dosage: UNK, UNK
     Dates: start: 20070420, end: 20080301
  4. ISOVORIN [Suspect]
     Indication: COLON CANCER METASTATIC
     Route: 041
     Dates: start: 20070420, end: 20080313

REACTIONS (1)
  - GASTRIC ULCER [None]
